FAERS Safety Report 8400995-5 (Version None)
Quarter: 2012Q2

REPORT INFORMATION
  Report Type: 
  Country: None (occurrence: None)
  Receive Date: 20120601
  Receipt Date: 20120523
  Transmission Date: 20120825
  Serious: No
  Sender: FDA-Public Use
  Company Number: US-BIOGENIDEC-2011BI049116

PATIENT
  Sex: Female

DRUGS (2)
  1. AVONEX [Suspect]
  2. AVONEX [Suspect]
     Indication: MULTIPLE SCLEROSIS
     Route: 030
     Dates: start: 19960610, end: 19980715

REACTIONS (6)
  - BALANCE DISORDER [None]
  - ARTERITIS [None]
  - HEMIPARESIS [None]
  - GAIT DISTURBANCE [None]
  - ANXIETY [None]
  - MULTIPLE SCLEROSIS RELAPSE [None]
